FAERS Safety Report 9596972 (Version 2)
Quarter: 2013Q4

REPORT INFORMATION
  Report Type: Spontaneous
  Country: US (occurrence: US)
  Receive Date: 20131004
  Receipt Date: 20131010
  Transmission Date: 20140711
  Serious: Yes (Life-Threatening, Hospitalization, Other)
  Sender: FDA-Public Use
  Company Number: US-BAXTER-2013BAX038667

PATIENT
  Age: 51 Year
  Sex: Female

DRUGS (1)
  1. DIANEAL LOW CALCIUM [Suspect]
     Indication: PERITONEAL DIALYSIS
     Route: 033
     Dates: start: 201301

REACTIONS (5)
  - Gastrointestinal infection [Recovering/Resolving]
  - Apparent death [Recovering/Resolving]
  - Pneumonia [Recovering/Resolving]
  - Large intestine perforation [Recovering/Resolving]
  - Peritonitis [Recovering/Resolving]
